FAERS Safety Report 4363050-X (Version None)
Quarter: 2004Q2

REPORT INFORMATION
  Report Type: 
  Country: None (occurrence: None)
  Receive Date: 20040518
  Receipt Date: 20040504
  Transmission Date: 20050107
  Serious: Yes (Hospitalization)
  Sender: FDA-Public Use
  Company Number: EM2004-0202

PATIENT
  Age: 65 Year
  Sex: Male

DRUGS (4)
  1. PROLEUKIN; CHIRON CORPORATION (ALDESLEUKIN) INJECTION [Suspect]
     Indication: RENAL CELL CARCINOMA STAGE UNSPECIFIED
     Dosage: 19.8 MIU, SUBCUTAN.
     Route: 058
     Dates: start: 20030523, end: 20030603
  2. INTNRON (INTTERFERON ALFA) [Suspect]
     Indication: RENAL CELL CARCINOMA STAGE UNSPECIFIED
     Dosage: 11.7, SUBCUTAN.
     Route: 058
     Dates: start: 20030523, end: 20030603
  3. 5-FLU (5-FLUOROURACIL) [Suspect]
     Indication: RENAL CELL CARCINOMA STAGE UNSPECIFIED
     Dosage: INTRAVENOUS
     Route: 042
     Dates: start: 20030523
  4. ACETAMINOPHEN [Concomitant]

REACTIONS (7)
  - BLOOD CREATININE INCREASED [None]
  - CHEST PAIN [None]
  - DIARRHOEA [None]
  - MALAISE [None]
  - PSYCHOTIC DISORDER [None]
  - PYREXIA [None]
  - SOCIAL PROBLEM [None]
